FAERS Safety Report 4677387-8 (Version None)
Quarter: 2005Q2

REPORT INFORMATION
  Report Type: 
  Country: None (occurrence: None)
  Receive Date: 20050526
  Receipt Date: 20050526
  Transmission Date: 20051028
  Serious: Yes (Hospitalization)
  Sender: FDA-Public Use
  Company Number: None

PATIENT
  Age: 10 Month
  Sex: Female
  Weight: 8.6 kg

DRUGS (5)
  1. AMOXICILLIN [Suspect]
     Indication: OTITIS MEDIA
     Dosage: 200 MG PO X 1
     Route: 048
  2. XOPENEX [Suspect]
  3. ATROVENT [Suspect]
  4. SOLU-MEDROL [Concomitant]
  5. BENADRYL [Concomitant]

REACTIONS (4)
  - OXYGEN SATURATION DECREASED [None]
  - RED MAN SYNDROME [None]
  - SWELLING FACE [None]
  - WHEEZING [None]
